FAERS Safety Report 25560572 (Version 1)
Quarter: 2025Q3

REPORT INFORMATION
  Report Type: Spontaneous
  Country: US (occurrence: US)
  Receive Date: 20250715
  Receipt Date: 20250715
  Transmission Date: 20251020
  Serious: No
  Sender: NOVO NORDISK
  Company Number: US-NOVOPROD-1426327

PATIENT
  Sex: Female

DRUGS (1)
  1. OZEMPIC [Suspect]
     Active Substance: SEMAGLUTIDE
     Indication: Type 1 diabetes mellitus
     Dosage: 0.25 MG, QW
     Dates: start: 20241001

REACTIONS (11)
  - Muscle spasms [Unknown]
  - Muscle atrophy [Unknown]
  - Vertigo [Unknown]
  - Muscle spasms [Unknown]
  - Muscle spasms [Unknown]
  - Muscle spasms [Unknown]
  - Muscle spasms [Unknown]
  - Nausea [Unknown]
  - Diarrhoea [Unknown]
  - Off label use [Unknown]
  - Wrong technique in product usage process [Unknown]

NARRATIVE: CASE EVENT DATE: 20241001
